FAERS Safety Report 9493521 (Version 4)
Quarter: 2014Q3

REPORT INFORMATION
  Report Type: Spontaneous
  Country: US (occurrence: US)
  Receive Date: 20130902
  Receipt Date: 20140821
  Transmission Date: 20150326
  Serious: Yes (Hospitalization, Other)
  Sender: FDA-Public Use
  Company Number: US-PFIZER INC-2013248552

PATIENT
  Age: 56 Year
  Sex: Male

DRUGS (3)
  1. INLYTA [Suspect]
     Active Substance: AXITINIB
     Dosage: UNK
     Dates: start: 20130524
  2. INLYTA [Suspect]
     Active Substance: AXITINIB
     Dosage: 5 MG, 2X/DAY
  3. INLYTA [Suspect]
     Active Substance: AXITINIB
     Indication: RENAL CELL CARCINOMA
     Dosage: 1 MG, 3 TABLETS TWICE A DAY
     Dates: start: 20130524

REACTIONS (12)
  - Arthropathy [Unknown]
  - Chest discomfort [Unknown]
  - Chest pain [Unknown]
  - Blister [Unknown]
  - Disease progression [Unknown]
  - Renal cell carcinoma [Unknown]
  - Blood pressure increased [Unknown]
  - Dry skin [Unknown]
  - Hypoaesthesia [Unknown]
  - Pharyngeal oedema [Unknown]
  - Constipation [Unknown]
  - Convulsion [Unknown]

NARRATIVE: CASE EVENT DATE: 2013
